FAERS Safety Report 12130637 (Version 1)
Quarter: 2016Q1

REPORT INFORMATION
  Report Type: Spontaneous
  Country: US (occurrence: None)
  Receive Date: 20160229
  Receipt Date: 20160229
  Transmission Date: 20160526
  Serious: No
  Sender: FDA-Public Use
  Company Number: None

PATIENT
  Age: 25 Year
  Sex: Female

DRUGS (1)
  1. HUMIRA [Suspect]
     Active Substance: ADALIMUMAB
     Dosage: 40 MG EVERY 2 WEEKS SQ
     Route: 058
     Dates: start: 201507

REACTIONS (6)
  - Streptococcal infection [None]
  - Cough [None]
  - Nasal congestion [None]
  - Malaise [None]
  - Nasal obstruction [None]
  - Dyspnoea [None]

NARRATIVE: CASE EVENT DATE: 20160204
